FAERS Safety Report 5124547-8 (Version None)
Quarter: 2006Q3

REPORT INFORMATION
  Report Type: 
  Country: None (occurrence: None)
  Receive Date: 20060821
  Receipt Date: 20060614
  Transmission Date: 20061208
  Serious: No
  Sender: FDA-Public Use
  Company Number: TPA2006A00982

PATIENT
  Age: 90 Year
  Sex: Female
  Weight: 53.5244 kg

DRUGS (6)
  1. ROZEREM [Suspect]
     Indication: INSOMNIA
     Dosage: 8 MG, QHS, PER ORAL
     Route: 048
     Dates: start: 20060613, end: 20060614
  2. METOPROLOL (METOPROLOL) [Concomitant]
  3. PLAVIX [Concomitant]
  4. IMDUR [Concomitant]
  5. ZOCOR [Concomitant]
  6. AMBIEN [Concomitant]

REACTIONS (6)
  - CONDITION AGGRAVATED [None]
  - CONJUNCTIVAL HYPERAEMIA [None]
  - HEADACHE [None]
  - INSOMNIA [None]
  - MALAISE [None]
  - NASAL CONGESTION [None]
